FAERS Safety Report 9486517 (Version 3)
Quarter: 2013Q4

REPORT INFORMATION
  Report Type: Spontaneous
  Country: US (occurrence: US)
  Receive Date: 20130829
  Receipt Date: 20131016
  Transmission Date: 20140711
  Serious: Yes (Other)
  Sender: FDA-Public Use
  Company Number: US-SANOFI-AVENTIS-2013SA048161

PATIENT
  Age: 57 Year
  Sex: Male
  Weight: 81.64 kg

DRUGS (1)
  1. AUBAGIO [Suspect]
     Indication: MULTIPLE SCLEROSIS
     Route: 048
     Dates: start: 20130201

REACTIONS (3)
  - Multiple sclerosis [Unknown]
  - Formication [Recovered/Resolved]
  - Diarrhoea [Recovered/Resolved]
